FAERS Safety Report 7717522-8 (Version None)
Quarter: 2011Q3

REPORT INFORMATION
  Report Type: 
  Country: None (occurrence: None)
  Receive Date: 20110830
  Receipt Date: 20110818
  Transmission Date: 20111222
  Serious: Yes (Life-Threatening, Hospitalization, Other)
  Sender: FDA-Public Use
  Company Number: DE-ELI_LILLY_AND_COMPANY-DE201108005616

PATIENT
  Sex: Female

DRUGS (3)
  1. FORTEO [Suspect]
     Indication: OSTEOPOROSIS
     Dosage: UNK, QD
     Route: 058
     Dates: start: 20110121, end: 20110527
  2. VITAMIN D [Concomitant]
  3. CALCIUM CARBONATE [Concomitant]

REACTIONS (2)
  - ATRIAL FIBRILLATION [None]
  - ARRHYTHMIA [None]
